FAERS Safety Report 10059514 (Version 1)
Quarter: 2014Q2

REPORT INFORMATION
  Report Type: Spontaneous
  Country: US (occurrence: US)
  Receive Date: 20140404
  Receipt Date: 20140404
  Transmission Date: 20141212
  Serious: No
  Sender: FDA-Public Use
  Company Number: US-GLAXOSMITHKLINE-A1029038A

PATIENT
  Age: 42 Year
  Sex: Female

DRUGS (3)
  1. ALLI [Suspect]
     Indication: WEIGHT DECREASED
     Route: 048
     Dates: start: 201304
  2. OXYCODONE [Concomitant]
  3. FIORICET [Concomitant]

REACTIONS (3)
  - Frequent bowel movements [Recovered/Resolved]
  - Rectal discharge [Recovered/Resolved]
  - Product quality issue [Recovered/Resolved]
